FAERS Safety Report 24619563 (Version 1)
Quarter: 2024Q4

REPORT INFORMATION
  Report Type: Spontaneous
  Country: US (occurrence: US)
  Receive Date: 20241114
  Receipt Date: 20241114
  Transmission Date: 20250115
  Serious: No
  Sender: CURRAX PHARMACEUTICALS
  Company Number: US-CURRAX PHARMACEUTICALS LLC-US-2024CUR000795

PATIENT
  Sex: Female
  Weight: 88.435 kg

DRUGS (2)
  1. CONTRAVE [Suspect]
     Active Substance: BUPROPION HYDROCHLORIDE\NALTREXONE HYDROCHLORIDE
     Indication: Weight control
     Dosage: STRENGTH: 8/90 MG, UNKNOWN DOSE AND FREQUENCY
     Route: 065
     Dates: start: 2023
  2. CONTRAVE [Suspect]
     Active Substance: BUPROPION HYDROCHLORIDE\NALTREXONE HYDROCHLORIDE
     Dosage: STRENGTH: 8/90 MG, 2 BID (FULL DOSE)
     Route: 065

REACTIONS (6)
  - Weight increased [Unknown]
  - Constipation [Recovering/Resolving]
  - Nausea [Unknown]
  - Headache [Unknown]
  - Therapeutic response unexpected [Unknown]
  - Therapeutic product effect incomplete [Unknown]
